FAERS Safety Report 24917484 (Version 1)
Quarter: 2025Q1

REPORT INFORMATION
  Report Type: Spontaneous
  Country: US (occurrence: US)
  Receive Date: 20250203
  Receipt Date: 20250203
  Transmission Date: 20250409
  Serious: Yes (Death, Other)
  Sender: BRISTOL-MYERS SQUIBB COMPANY
  Company Number: US-BRISTOL-MYERS SQUIBB COMPANY-2025-015328

PATIENT
  Age: 79 Year
  Sex: Male
  Weight: 108.4 kg

DRUGS (2)
  1. IDHIFA [Suspect]
     Active Substance: ENASIDENIB MESYLATE
     Indication: Myelodysplastic syndrome
     Dosage: 1 TABLET ONCE DAILY
     Route: 048
     Dates: start: 20241012
  2. VENCLEXTA [Concomitant]
     Active Substance: VENETOCLAX
     Indication: Myelodysplastic syndrome
     Dosage: 1 TABLET ONCE DAILY
     Route: 048
     Dates: start: 20241014

REACTIONS (2)
  - Death [Fatal]
  - Off label use [Unknown]
